FAERS Safety Report 5599874-0 (Version None)
Quarter: 2008Q1

REPORT INFORMATION
  Report Type: 
  Country: None (occurrence: None)
  Receive Date: 20080117
  Receipt Date: 20080117
  Transmission Date: 20080703
  Serious: Yes (Hospitalization)
  Sender: FDA-Public Use
  Company Number: None

PATIENT
  Age: 71 Year
  Sex: Male
  Weight: 93.8946 kg

DRUGS (1)
  1. ABRAXANE [Suspect]
     Indication: BLADDER CANCER
     Dosage: 150MG/30ML NS INTRAVESICAL
     Route: 043
     Dates: start: 20080109

REACTIONS (1)
  - URINARY TRACT INFECTION [None]
